FAERS Safety Report 6557510-0 (Version None)
Quarter: 2010Q1

REPORT INFORMATION
  Report Type: 
  Country: None (occurrence: None)
  Receive Date: 20100129
  Receipt Date: 20100119
  Transmission Date: 20100710
  Serious: Yes (Other)
  Sender: FDA-Public Use
  Company Number: US-JNJFOC-20100103712

PATIENT
  Sex: Female
  Weight: 31 kg

DRUGS (7)
  1. INFLIXIMAB [Suspect]
     Indication: INFLAMMATORY BOWEL DISEASE
     Route: 042
  2. MULTI-VITAMINS [Concomitant]
  3. OMEGA 3 FATTY ACID [Concomitant]
  4. COENZYME Q10 [Concomitant]
  5. FOLIC ACID [Concomitant]
  6. GENOTROPIN [Concomitant]
  7. TOBRADEX [Concomitant]

REACTIONS (2)
  - STAPHYLOCOCCAL INFECTION [None]
  - SUBCUTANEOUS ABSCESS [None]
